FAERS Safety Report 7685143 (Version 7)
Quarter: 2012Q4

REPORT INFORMATION
  Report Type: 
  Country: US (occurrence: US)
  Receive Date: 20101129
  Receipt Date: 20121123
  Transmission Date: 20130627
  Serious: Yes (Hospitalization)
  Sender: FDA-Public Use
  Company Number: US-ACTELION-A-NJ2006-13649

PATIENT
  Age: 53 Year
  Sex: Female

DRUGS (7)
  1. TRACLEER [Suspect]
     Indication: PULMONARY ARTERIAL HYPERTENSION
     Dosage: UNK
     Route: 048
     Dates: start: 20020420
  2. SILDENAFIL [Concomitant]
  3. ADCIRCA [Concomitant]
  4. COUMADIN [Concomitant]
  5. DIGOXIN [Concomitant]
  6. DEMADEX [Concomitant]
  7. SPIRONOLACTONE [Concomitant]

REACTIONS (21)
  - Tendonitis [Unknown]
  - Gait disturbance [Unknown]
  - Cellulitis [Unknown]
  - Myocardial infarction [Unknown]
  - Back pain [Unknown]
  - Dyspnoea [Unknown]
  - Pulmonary arterial hypertension [Unknown]
  - Condition aggravated [Unknown]
  - Pneumonia [Unknown]
  - Cardiac failure congestive [Unknown]
  - Fluid overload [Unknown]
  - Oedema [Unknown]
  - Concomitant disease aggravated [Unknown]
  - Pain [Unknown]
  - Chest pain [Unknown]
  - Extrasystoles [Unknown]
  - Diabetes mellitus [Unknown]
  - Sleep apnoea syndrome [Unknown]
  - Chest discomfort [Unknown]
  - Urine odour abnormal [Unknown]
  - Fatigue [Unknown]
